FAERS Safety Report 20554887 (Version 1)
Quarter: 2022Q1

REPORT INFORMATION
  Report Type: Spontaneous
  Country: US (occurrence: US)
  Receive Date: 20220304
  Receipt Date: 20220304
  Transmission Date: 20220423
  Serious: No
  Sender: FDA-Public Use
  Company Number: US-ANIPHARMA-2021-US-027317

PATIENT
  Sex: Male

DRUGS (2)
  1. CASODEX [Suspect]
     Active Substance: BICALUTAMIDE
     Indication: Product used for unknown indication
     Route: 065
     Dates: start: 200401
  2. ZOLADEX [Suspect]
     Active Substance: GOSERELIN ACETATE
     Route: 065
     Dates: start: 200401

REACTIONS (1)
  - Prostatic specific antigen increased [Unknown]
